FAERS Safety Report 8949741 (Version 1)
Quarter: 2012Q4

REPORT INFORMATION
  Report Type: 
  Country: US (occurrence: US)
  Receive Date: 20121206
  Receipt Date: 20121206
  Transmission Date: 20130627
  Serious: No
  Sender: FDA-Public Use
  Company Number: US-B.I. PHARMACEUTICALS,INC./RIDGEFIELD-2012-BI-02447BP

PATIENT
  Sex: Female
  Weight: 56 kg

DRUGS (6)
  1. SPIRIVA [Suspect]
     Indication: CHRONIC OBSTRUCTIVE PULMONARY DISEASE
     Dosage: 18 mcg
     Route: 055
     Dates: start: 201209
  2. ATENOLOL [Concomitant]
     Indication: HYPERTENSION
     Route: 048
  3. ASPIRIN [Concomitant]
     Dosage: 162 mg
     Route: 048
  4. CITALOPRAM [Concomitant]
     Route: 048
  5. DOXAZOSIN [Concomitant]
     Dosage: 1 mg
     Route: 048
  6. ATORVASTATIN [Concomitant]
     Dosage: 30 mg
     Route: 048

REACTIONS (1)
  - Tremor [Not Recovered/Not Resolved]
